FAERS Safety Report 7064348-7 (Version None)
Quarter: 2010Q4

REPORT INFORMATION
  Report Type: 
  Country: None (occurrence: None)
  Receive Date: 20101027
  Receipt Date: 20101025
  Transmission Date: 20110411
  Serious: Yes (Life-Threatening, Hospitalization)
  Sender: FDA-Public Use
  Company Number: RU-SANOFI-AVENTIS-200911125GDDC

PATIENT
  Age: 68 Year
  Sex: Female
  Weight: 73 kg

DRUGS (9)
  1. LEFLUNOMIDE [Suspect]
     Indication: RHEUMATOID ARTHRITIS
     Route: 048
     Dates: start: 20090116, end: 20090116
  2. LEFLUNOMIDE [Suspect]
     Route: 048
     Dates: start: 20090117, end: 20090118
  3. NIMESULIDE [Suspect]
     Indication: RHEUMATOID ARTHRITIS
     Dosage: DOSE AS USED: 100-200 MG
     Route: 048
     Dates: start: 20080601, end: 20090119
  4. DIGOXIN [Concomitant]
     Indication: CARDIAC FIBRILLATION
     Route: 048
     Dates: start: 20080901
  5. ATENOLOL [Concomitant]
     Route: 048
     Dates: start: 19990101
  6. SPIRONOLACTONE [Concomitant]
     Dosage: DOSE AS USED: 1 TAB
     Route: 048
     Dates: start: 20080901
  7. ACETYLSALICYLIC ACID [Concomitant]
     Route: 048
     Dates: start: 19990101
  8. METFORMIN [Concomitant]
     Indication: DIABETES MELLITUS
     Route: 048
     Dates: start: 20080901
  9. L-THYROXIN ^HENNING GEORGE^ [Concomitant]
     Indication: HYPERTHYROIDISM
     Route: 048
     Dates: start: 20080901

REACTIONS (3)
  - CARDIAC FAILURE [None]
  - CREPITATIONS [None]
  - DYSPNOEA [None]
